FAERS Safety Report 5627950-2 (Version None)
Quarter: 2008Q1

REPORT INFORMATION
  Report Type: 
  Country: None (occurrence: None)
  Receive Date: 20080215
  Receipt Date: 20080201
  Transmission Date: 20080703
  Serious: Yes (Death, Hospitalization, Other)
  Sender: FDA-Public Use
  Company Number: US-AMGEN-US261153

PATIENT
  Sex: Male
  Weight: 61 kg

DRUGS (6)
  1. EPOGEN [Suspect]
     Indication: DIALYSIS
     Route: 058
     Dates: start: 20070807, end: 20080122
  2. METOPROLOL TARTRATE [Concomitant]
     Dates: start: 20060601
  3. LOVASTATIN [Concomitant]
     Dates: start: 20071018
  4. CARVEDILOL [Concomitant]
     Dates: start: 20060218
  5. PHOSLO [Concomitant]
     Dates: start: 20060101
  6. PLAVIX [Concomitant]

REACTIONS (7)
  - APLASIA PURE RED CELL [None]
  - ARTERIAL STENOSIS [None]
  - CHOLELITHIASIS [None]
  - DEATH [None]
  - OCCULT BLOOD POSITIVE [None]
  - PLEURAL EFFUSION [None]
  - SCAN LYMPH NODES [None]
